FAERS Safety Report 15109080 (Version 2)
Quarter: 2018Q3

REPORT INFORMATION
  Report Type: Spontaneous
  Country: US (occurrence: US)
  Receive Date: 20180705
  Receipt Date: 20180718
  Transmission Date: 20181010
  Serious: No
  Sender: FDA-Public Use
  Company Number: US-BIOGEN-2018BI00603076

PATIENT
  Sex: Male

DRUGS (1)
  1. PLEGRIDY [Suspect]
     Active Substance: PEGINTERFERON BETA-1A
     Indication: MULTIPLE SCLEROSIS
     Route: 065

REACTIONS (9)
  - Body temperature increased [Unknown]
  - Aphasia [Unknown]
  - Malaise [Unknown]
  - Feeling cold [Not Recovered/Not Resolved]
  - Mental impairment [Unknown]
  - Dysarthria [Recovered/Resolved]
  - Tremor [Unknown]
  - Dysstasia [Unknown]
  - Gait inability [Unknown]
